FAERS Safety Report 17527556 (Version 3)
Quarter: 2020Q2

REPORT INFORMATION
  Report Type: Spontaneous
  Country: FI (occurrence: FI)
  Receive Date: 20200311
  Receipt Date: 20200622
  Transmission Date: 20200713
  Serious: Yes (Hospitalization)
  Sender: FDA-Public Use
  Company Number: FI-JNJFOC-20200243427

PATIENT
  Age: 25 Year
  Sex: Female
  Weight: 55 kg

DRUGS (4)
  1. TREMFYA [Suspect]
     Active Substance: GUSELKUMAB
     Indication: PSORIASIS
     Route: 058
     Dates: start: 20191220
  2. TREMFYA [Suspect]
     Active Substance: GUSELKUMAB
     Indication: HYPOTHYROIDISM
  3. TREMFYA [Suspect]
     Active Substance: GUSELKUMAB
  4. THYROXIN [Concomitant]
     Active Substance: LEVOTHYROXINE
     Indication: HYPOTHYROIDISM
     Route: 048

REACTIONS (1)
  - Meningitis viral [Unknown]

NARRATIVE: CASE EVENT DATE: 20200201
